FAERS Safety Report 24553394 (Version 1)
Quarter: 2024Q4

REPORT INFORMATION
  Report Type: Report from Study
  Country: US (occurrence: US)
  Receive Date: 20241028
  Receipt Date: 20241028
  Transmission Date: 20250114
  Serious: No
  Sender: ROCHE
  Company Number: US-ROCHE-3515533

PATIENT
  Sex: Male
  Weight: 23.92 kg

DRUGS (11)
  1. NUTROPIN AQ [Suspect]
     Active Substance: SOMATROPIN
     Indication: Short stature
     Dosage: YES
     Route: 058
     Dates: start: 20210224
  2. ACETAMINOPHEN [Concomitant]
     Active Substance: ACETAMINOPHEN
     Route: 048
  3. BACITRACIN [Concomitant]
     Active Substance: BACITRACIN
     Route: 061
  4. CYPROHEPTADINE [Concomitant]
     Active Substance: CYPROHEPTADINE
     Route: 048
  5. FLONASE [Concomitant]
     Active Substance: FLUTICASONE PROPIONATE
     Dosage: 1 SPRAY
     Route: 045
  6. FLOVENT HFA [Concomitant]
     Active Substance: FLUTICASONE PROPIONATE
     Route: 055
  7. NORDITROPIN [Concomitant]
     Active Substance: SOMATROPIN
  8. TRI-VI-SOL [Concomitant]
     Route: 048
  9. VENTOLIN HFA [Concomitant]
     Active Substance: ALBUTEROL SULFATE
     Dosage: 2 PUFFS
     Route: 055
  10. ALBUTEROL [Concomitant]
     Active Substance: ALBUTEROL
  11. OMEPRAZOLE [Concomitant]
     Active Substance: OMEPRAZOLE

REACTIONS (4)
  - Insulin-like growth factor increased [Unknown]
  - Blood phosphorus abnormal [Unknown]
  - Fibroblast growth factor 23 increased [Unknown]
  - Blood calcium abnormal [Unknown]
